FAERS Safety Report 26093675 (Version 1)
Quarter: 2025Q4

REPORT INFORMATION
  Report Type: Spontaneous
  Country: US (occurrence: US)
  Receive Date: 20251126
  Receipt Date: 20251126
  Transmission Date: 20260118
  Serious: Yes (Life-Threatening, Hospitalization)
  Sender: Kenvue
  Company Number: None

PATIENT
  Age: 22 Year
  Sex: Female

DRUGS (1)
  1. ACETAMINOPHEN [Suspect]
     Active Substance: ACETAMINOPHEN
     Indication: Product used for unknown indication
     Route: 065

REACTIONS (5)
  - Restlessness [Recovered/Resolved]
  - Mental status changes [Recovered/Resolved]
  - Blood lactic acid increased [Recovered/Resolved]
  - Blood pH decreased [Recovered/Resolved]
  - Overdose [Unknown]
